FAERS Safety Report 5741159-3 (Version None)
Quarter: 2008Q2

REPORT INFORMATION
  Report Type: 
  Country: None (occurrence: None)
  Receive Date: 20080516
  Receipt Date: 20080509
  Transmission Date: 20081010
  Serious: Yes (Hospitalization, Other)
  Sender: FDA-Public Use
  Company Number: US-PFIZER INC-2008040539

PATIENT
  Sex: Female
  Weight: 49.9 kg

DRUGS (4)
  1. CHANTIX [Suspect]
     Indication: SMOKING CESSATION THERAPY
     Dates: start: 20080417, end: 20080504
  2. ANALGESICS [Concomitant]
  3. INSULIN [Concomitant]
     Indication: DIABETES MELLITUS
  4. DRUG, UNSPECIFIED [Concomitant]
     Indication: HYPOTHYROIDISM

REACTIONS (5)
  - ARTERIAL THROMBOSIS LIMB [None]
  - BLOOD POTASSIUM INCREASED [None]
  - INTENTIONAL DRUG MISUSE [None]
  - NAUSEA [None]
  - THROMBOSIS [None]
